FAERS Safety Report 13117653 (Version 3)
Quarter: 2017Q1

REPORT INFORMATION
  Report Type: Spontaneous
  Country: DE (occurrence: DE)
  Receive Date: 20170116
  Receipt Date: 20170206
  Transmission Date: 20170428
  Serious: Yes (Hospitalization)
  Sender: FDA-Public Use
  Company Number: DE-GLAXOSMITHKLINE-DE2017GSK002219

PATIENT
  Age: 66 Year
  Sex: Female

DRUGS (5)
  1. ENGERIX-B [Suspect]
     Active Substance: HEPATITIS B VIRUS SUBTYPE ADW2 HBSAG SURFACE PROTEIN ANTIGEN
     Indication: PROPHYLAXIS
     Route: 030
     Dates: start: 20160713, end: 20160713
  2. SIMVASTATINE [Concomitant]
     Active Substance: SIMVASTATIN
     Dosage: UNK
     Route: 048
  3. CEFUROXIM [Suspect]
     Active Substance: CEFUROXIME
     Indication: CHEMOTHERAPY
     Dosage: UNK
     Dates: start: 20160716
  4. ACETYL SALICYLIC ACID [Concomitant]
     Active Substance: ASPIRIN
     Indication: PLATELET AGGREGATION
     Dosage: 100 MG, UNK
     Route: 048
  5. METRONIDAZOL [Suspect]
     Active Substance: METRONIDAZOLE
     Indication: CHEMOTHERAPY
     Dosage: UNK
     Dates: start: 20160716

REACTIONS (5)
  - Livedo reticularis [Not Recovered/Not Resolved]
  - Abdominal pain [Recovered/Resolved]
  - Rash erythematous [Not Recovered/Not Resolved]
  - Malaise [Recovered/Resolved]
  - Vomiting [Recovered/Resolved]

NARRATIVE: CASE EVENT DATE: 201607
